FAERS Safety Report 9830202 (Version 6)
Quarter: 2014Q2

REPORT INFORMATION
  Report Type: Report from Study
  Country: US (occurrence: US)
  Receive Date: 20140120
  Receipt Date: 20140430
  Transmission Date: 20141212
  Serious: Yes (Life-Threatening, Hospitalization)
  Sender: FDA-Public Use
  Company Number: US-ACTELION-A-US2014-93575

PATIENT
  Age: 63 Year
  Sex: Male

DRUGS (3)
  1. VELETRI [Suspect]
     Indication: COR PULMONALE CHRONIC
     Dosage: 8 NG/KG, PER MIN
     Route: 042
     Dates: start: 20130925
  2. SILDENAFIL [Concomitant]
  3. COUMADIN [Concomitant]

REACTIONS (11)
  - Mechanical ventilation [Unknown]
  - Cough [Unknown]
  - Dyspnoea [Unknown]
  - Medical device complication [Unknown]
  - Hypoxia [Unknown]
  - Coronary artery bypass [Unknown]
  - Coronary artery occlusion [Unknown]
  - Chest pain [Unknown]
  - Weight decreased [Unknown]
  - Pain in jaw [Unknown]
  - Condition aggravated [Unknown]
